FAERS Safety Report 8051577-9 (Version None)
Quarter: 2012Q1

REPORT INFORMATION
  Report Type: 
  Country: None (occurrence: None)
  Receive Date: 20120117
  Receipt Date: 20120104
  Transmission Date: 20120608
  Serious: Yes (Hospitalization, Other)
  Sender: FDA-Public Use
  Company Number: DE-AMGEN-DEUCT2011059331

PATIENT
  Age: 32 Year
  Sex: Male
  Weight: 108 kg

DRUGS (2)
  1. CELECOXIB [Concomitant]
     Indication: SPONDYLITIS
     Dosage: UNK
     Route: 048
     Dates: start: 20101201
  2. ETANERCEPT [Suspect]
     Indication: PRODUCT USED FOR UNKNOWN INDICATION
     Dosage: 25 MG, 2X/WEEK
     Dates: start: 20080930, end: 20111219

REACTIONS (1)
  - SARCOIDOSIS [None]
